FAERS Safety Report 20659729 (Version 2)
Quarter: 2022Q2

REPORT INFORMATION
  Report Type: Spontaneous
  Country: TR (occurrence: TR)
  Receive Date: 20220331
  Receipt Date: 20220410
  Transmission Date: 20220720
  Serious: Yes (Death, Other)
  Sender: FDA-Public Use
  Company Number: TR-NOVARTISPH-NVSC2022TR072806

PATIENT
  Age: 56 Year
  Sex: Female

DRUGS (4)
  1. CYCLOSPORINE [Suspect]
     Active Substance: CYCLOSPORINE
     Indication: Renal disorder
     Dosage: UNK
     Route: 065
     Dates: start: 202111
  2. FUROSEMIDE [Concomitant]
     Active Substance: FUROSEMIDE
     Indication: Product used for unknown indication
     Dosage: UNK
     Route: 065
  3. PREDNISOLONE [Concomitant]
     Active Substance: PREDNISOLONE
     Indication: Product used for unknown indication
     Dosage: UNK
     Route: 065
  4. ENOXAPARIN [Concomitant]
     Active Substance: ENOXAPARIN
     Indication: Product used for unknown indication
     Dosage: UNK
     Route: 065

REACTIONS (13)
  - Myalgia [Fatal]
  - Asthenia [Fatal]
  - Fatigue [Fatal]
  - Decreased appetite [Fatal]
  - Rash [Fatal]
  - Hair growth abnormal [Fatal]
  - Dyspnoea [Fatal]
  - Urine output decreased [Fatal]
  - Renal failure [Fatal]
  - Pulmonary oedema [Fatal]
  - Circadian rhythm sleep disorder [Fatal]
  - Renal impairment [Fatal]
  - Product use in unapproved indication [Unknown]

NARRATIVE: CASE EVENT DATE: 20220101
